FAERS Safety Report 20654361 (Version 2)
Quarter: 2022Q2

REPORT INFORMATION
  Report Type: Report from Study
  Country: US (occurrence: US)
  Receive Date: 20220330
  Receipt Date: 20220408
  Transmission Date: 20220720
  Serious: Yes (Other)
  Sender: FDA-Public Use
  Company Number: US-REGENERON PHARMACEUTICALS, INC.-2022-44388

PATIENT
  Sex: Male

DRUGS (3)
  1. EYLEA [Suspect]
     Active Substance: AFLIBERCEPT
     Indication: Retinal haemorrhage
     Dosage: 2 MG, Q4W, INTO THE RIGHT EYE (2MG/0.05ML)
     Route: 031
     Dates: start: 20211020, end: 202112
  2. EYLEA [Suspect]
     Active Substance: AFLIBERCEPT
     Indication: Retinal vein occlusion
  3. EYLEA [Suspect]
     Active Substance: AFLIBERCEPT
     Indication: Macular oedema

REACTIONS (13)
  - Haemangioma rupture [Recovered/Resolved]
  - Acute cardiac event [Recovered/Resolved]
  - Hypotension [Unknown]
  - Off label use [Unknown]
  - Therapy interrupted [Unknown]
  - Sinus disorder [Unknown]
  - Blister [Recovered/Resolved]
  - Lip neoplasm benign [Recovered/Resolved]
  - Dehydration [Unknown]
  - Oropharyngeal pain [Unknown]
  - Eye pain [Unknown]
  - Lacrimation increased [Unknown]
  - Pruritus [Not Recovered/Not Resolved]

NARRATIVE: CASE EVENT DATE: 20211001
